FAERS Safety Report 7876818-X (Version None)
Quarter: 2011Q4

REPORT INFORMATION
  Report Type: 
  Country: None (occurrence: None)
  Receive Date: 20111031
  Receipt Date: 20111021
  Transmission Date: 20120403
  Serious: Yes (Other)
  Sender: FDA-Public Use
  Company Number: MX-SANOFI-AVENTIS-2011SA068704

PATIENT
  Age: 74 Year
  Sex: Male

DRUGS (4)
  1. ASPIRIN [Concomitant]
     Route: 048
  2. LANTUS [Suspect]
     Indication: TYPE 2 DIABETES MELLITUS
     Dosage: 15 UNITS A DAY (10 IU IN THE AM AND 5 UNITS) SUBCUTANEOUS ROUTE.
     Dates: start: 20110501, end: 20111013
  3. LANTUS [Suspect]
     Dosage: 10 IU A DAY ( 5 IN THE AM AND 5 AT NIGHT) VIA THE SUBCUTANEOUS ROUTE
     Dates: start: 20111013
  4. PRAZOSIN HCL [Concomitant]
     Route: 048

REACTIONS (5)
  - BLINDNESS UNILATERAL [None]
  - HYPERGLYCAEMIA [None]
  - BLINDNESS TRANSIENT [None]
  - CATARACT OPERATION [None]
  - VISION BLURRED [None]
